FAERS Safety Report 7084506-5 (Version None)
Quarter: 2010Q4

REPORT INFORMATION
  Report Type: 
  Country: None (occurrence: None)
  Receive Date: 20101104
  Receipt Date: 20101102
  Transmission Date: 20110411
  Serious: Yes (Other)
  Sender: FDA-Public Use
  Company Number: US-PFIZER INC-2010079682

PATIENT
  Sex: Female

DRUGS (1)
  1. CHANTIX [Suspect]
     Indication: SMOKING CESSATION THERAPY
     Dosage: UNK
     Dates: start: 20090301, end: 20090101

REACTIONS (9)
  - AGGRESSION [None]
  - ANXIETY [None]
  - DEPRESSION [None]
  - DEREALISATION [None]
  - HOMICIDAL IDEATION [None]
  - MENTAL DISORDER [None]
  - NIGHTMARE [None]
  - PARANOIA [None]
  - SUICIDAL IDEATION [None]
